FAERS Safety Report 7374096-1 (Version None)
Quarter: 2011Q1

REPORT INFORMATION
  Report Type: 
  Country: None (occurrence: None)
  Receive Date: 20110325
  Receipt Date: 20110120
  Transmission Date: 20110831
  Serious: No
  Sender: FDA-Public Use
  Company Number: US-MYLANLABS-2010S1023519

PATIENT
  Age: 50 Year
  Sex: Female

DRUGS (6)
  1. CALCIUM [Concomitant]
  2. TAMOXIFEN CITRATE [Suspect]
     Route: 048
     Dates: start: 20100101, end: 20101221
  3. TAMOXIFEN CITRATE [Suspect]
     Indication: BREAST CANCER
     Route: 048
     Dates: start: 20101018, end: 20100101
  4. TAMOXIFEN CITRATE [Suspect]
     Route: 048
     Dates: start: 20100101, end: 20100101
  5. SIMVASTATIN [Suspect]
     Indication: BLOOD CHOLESTEROL
     Dates: start: 20101201
  6. MAGNESIUM [Concomitant]

REACTIONS (4)
  - REACTION TO DRUG EXCIPIENTS [None]
  - NAUSEA [None]
  - VOMITING [None]
  - BLOOD CHOLESTEROL INCREASED [None]
